FAERS Safety Report 13969405 (Version 2)
Quarter: 2018Q3

REPORT INFORMATION
  Report Type: Spontaneous
  Country: US (occurrence: US)
  Receive Date: 20170914
  Receipt Date: 20180913
  Transmission Date: 20181010
  Serious: Yes (Other)
  Sender: FDA-Public Use
  Company Number: US-ASTELLAS-2017US028265

PATIENT
  Sex: Male

DRUGS (7)
  1. ADVIL (MEFENAMIC ACID) [Concomitant]
     Active Substance: MEFENAMIC ACID
     Indication: PRODUCT USED FOR UNKNOWN INDICATION
     Dosage: UNK UNK, UNKNOWN FREQ.
     Route: 065
  2. XTANDI [Suspect]
     Active Substance: ENZALUTAMIDE
     Route: 048
     Dates: start: 201707, end: 201708
  3. XTANDI [Suspect]
     Active Substance: ENZALUTAMIDE
     Indication: PROSTATE CANCER
     Route: 048
     Dates: start: 20161129
  4. XTANDI [Suspect]
     Active Substance: ENZALUTAMIDE
     Route: 048
     Dates: start: 201706, end: 201707
  5. ONDANSETRON [Concomitant]
     Active Substance: ONDANSETRON
     Indication: PRODUCT USED FOR UNKNOWN INDICATION
     Dosage: UNK UNK, UNKNOWN FREQ.
     Route: 065
  6. PHENERGAN [Concomitant]
     Active Substance: PROMETHAZINE HYDROCHLORIDE
     Indication: PRODUCT USED FOR UNKNOWN INDICATION
     Dosage: UNK UNK, UNKNOWN FREQ.
     Route: 065
  7. POTASSIUM [Concomitant]
     Active Substance: POTASSIUM
     Indication: PRODUCT USED FOR UNKNOWN INDICATION
     Dosage: UNK UNK, UNKNOWN FREQ.
     Route: 065

REACTIONS (16)
  - Neuralgia [Recovering/Resolving]
  - Insomnia [Recovered/Resolved]
  - Nausea [Recovering/Resolving]
  - Prostatic specific antigen increased [Unknown]
  - Fall [Recovered/Resolved]
  - Dizziness [Not Recovered/Not Resolved]
  - Decreased appetite [Recovered/Resolved]
  - Asthenia [Recovering/Resolving]
  - Weight decreased [Recovering/Resolving]
  - Pain in extremity [Recovering/Resolving]
  - Oedema peripheral [Recovered/Resolved]
  - Arthralgia [Recovering/Resolving]
  - Back pain [Recovering/Resolving]
  - Flank pain [Recovering/Resolving]
  - Visual impairment [Recovering/Resolving]
  - Drug ineffective [Unknown]

NARRATIVE: CASE EVENT DATE: 2017
